FAERS Safety Report 13383932 (Version 1)
Quarter: 2017Q1

REPORT INFORMATION
  Report Type: Spontaneous
  Country: DE (occurrence: DE)
  Receive Date: 20170329
  Receipt Date: 20170329
  Transmission Date: 20170429
  Serious: Yes (Other)
  Sender: FDA-Public Use
  Company Number: DE-TEVA-748122GER

PATIENT
  Age: 56 Year
  Sex: Male
  Weight: 100 kg

DRUGS (1)
  1. VALSARTAN ABZ [Suspect]
     Active Substance: VALSARTAN
     Indication: HYPERTENSION
     Route: 048
     Dates: start: 20170215, end: 20170223

REACTIONS (12)
  - Abdominal pain [Recovering/Resolving]
  - Biliary colic [Recovering/Resolving]
  - Dysgeusia [Recovering/Resolving]
  - Pharyngeal oedema [Recovering/Resolving]
  - Aphthous ulcer [Recovering/Resolving]
  - Oedema mucosal [Recovering/Resolving]
  - Dysphagia [Recovering/Resolving]
  - Musculoskeletal discomfort [Recovering/Resolving]
  - Dry mouth [Recovering/Resolving]
  - Cholangitis [Recovering/Resolving]
  - Oesophageal discomfort [Recovering/Resolving]
  - Micturition urgency [Recovering/Resolving]

NARRATIVE: CASE EVENT DATE: 2017
